FAERS Safety Report 25814469 (Version 1)
Quarter: 2025Q3

REPORT INFORMATION
  Report Type: Spontaneous
  Country: US (occurrence: US)
  Receive Date: 20250917
  Receipt Date: 20250917
  Transmission Date: 20251020
  Serious: No
  Sender: MERCK SHARP & DOHME LLC
  Company Number: US-009507513-2329560

PATIENT
  Sex: Male
  Weight: 74.843 kg

DRUGS (13)
  1. SOTATERCEPT [Suspect]
     Active Substance: SOTATERCEPT
     Indication: Product used for unknown indication
     Route: 065
  2. SOTATERCEPT [Suspect]
     Active Substance: SOTATERCEPT
  3. SOTATERCEPT [Suspect]
     Active Substance: SOTATERCEPT
  4. SOTATERCEPT [Suspect]
     Active Substance: SOTATERCEPT
  5. REMODULIN [Concomitant]
     Active Substance: TREPROSTINIL
     Indication: Pulmonary arterial hypertension
     Route: 058
     Dates: start: 20250107
  6. XARELTO [Concomitant]
     Active Substance: RIVAROXABAN
  7. SODIUM CHLORIDE [Concomitant]
     Active Substance: SODIUM CHLORIDE
  8. OPSUMIT [Concomitant]
     Active Substance: MACITENTAN
  9. ADEMPAS [Concomitant]
     Active Substance: RIOCIGUAT
  10. COVID-19 vaccine (Tozinameran) [Concomitant]
  11. LOPERAMIDE [Concomitant]
     Active Substance: LOPERAMIDE
  12. TRAMADOL HCL [Concomitant]
     Active Substance: TRAMADOL HYDROCHLORIDE
  13. DIGOXIN [Concomitant]
     Active Substance: DIGOXIN

REACTIONS (1)
  - Product dose omission issue [Unknown]

NARRATIVE: CASE EVENT DATE: 20250101
